FAERS Safety Report 10247947 (Version 1)
Quarter: 2014Q2

REPORT INFORMATION
  Report Type: Spontaneous
  Country: US (occurrence: US)
  Receive Date: 20140619
  Receipt Date: 20140619
  Transmission Date: 20141212
  Serious: Yes (Other)
  Sender: FDA-Public Use
  Company Number: US-FRI-1000068248

PATIENT
  Age: 58 Year
  Sex: Female

DRUGS (9)
  1. TUDORZA PRESSAIR [Suspect]
     Indication: CHRONIC OBSTRUCTIVE PULMONARY DISEASE
     Dosage: 800 MCG
     Route: 055
     Dates: start: 20130715
  2. DALIRESP [Suspect]
     Indication: CHRONIC OBSTRUCTIVE PULMONARY DISEASE
     Dosage: 500 MCG
     Route: 048
     Dates: start: 20130218
  3. CITALOPRAM [Concomitant]
     Indication: DEPRESSION
  4. PREDNISONE [Concomitant]
  5. VENTOLIN HFA [Concomitant]
     Dosage: AS NEEDED
  6. VALSARTAN [Concomitant]
     Indication: HYPERTENSION
  7. SINGULAIR [Concomitant]
     Indication: SEASONAL ALLERGY
  8. DULERA [Concomitant]
     Indication: CHRONIC OBSTRUCTIVE PULMONARY DISEASE
  9. ZANAFLEX [Concomitant]

REACTIONS (5)
  - Bronchitis [Recovered/Resolved]
  - Eye pain [Not Recovered/Not Resolved]
  - Sputum discoloured [Not Recovered/Not Resolved]
  - Abdominal pain upper [Not Recovered/Not Resolved]
  - Diarrhoea [Not Recovered/Not Resolved]
